FAERS Safety Report 7893181-9 (Version None)
Quarter: 2011Q4

REPORT INFORMATION
  Report Type: 
  Country: None (occurrence: None)
  Receive Date: 20111104
  Receipt Date: 20111026
  Transmission Date: 20120403
  Serious: Yes (Other)
  Sender: FDA-Public Use
  Company Number: PHHY2011JP96515

PATIENT
  Age: 75 Year
  Sex: Male

DRUGS (2)
  1. DILTIAZEM HCL [Concomitant]
     Route: 048
  2. DIOVAN [Suspect]
     Route: 048

REACTIONS (1)
  - ORAL INFECTION [None]
